FAERS Safety Report 6833522-4 (Version None)
Quarter: 2010Q3

REPORT INFORMATION
  Report Type: 
  Country: None (occurrence: None)
  Receive Date: 20100712
  Receipt Date: 20070329
  Transmission Date: 20110219
  Serious: No
  Sender: FDA-Public Use
  Company Number: US-PFIZER INC-2007026214

PATIENT
  Sex: Male
  Weight: 95.25 kg

DRUGS (5)
  1. CHANTIX [Suspect]
     Indication: SMOKING CESSATION THERAPY
     Dates: start: 20070328
  2. ALL OTHER THERAPEUTIC PRODUCTS [Concomitant]
  3. FISH OIL [Concomitant]
  4. LOVAZA [Concomitant]
  5. NICOTINELL LOZENGE [Concomitant]

REACTIONS (3)
  - DRUG ADMINISTRATION ERROR [None]
  - FEELING ABNORMAL [None]
  - NAUSEA [None]
